FAERS Safety Report 16556458 (Version 8)
Quarter: 2020Q2

REPORT INFORMATION
  Report Type: Spontaneous
  Country: IT (occurrence: IT)
  Receive Date: 20190710
  Receipt Date: 20200622
  Transmission Date: 20200713
  Serious: Yes (Hospitalization, Other)
  Sender: FDA-Public Use
  Company Number: IT-CELLTRION INC.-2019IT022585

PATIENT

DRUGS (10)
  1. PREDNISONE. [Suspect]
     Active Substance: PREDNISONE
     Indication: PEMPHIGOID
     Dosage: 5 MG, QD (ADDITIONAL INFO: ADDITIONAL INFO: ACTION TAKEN: DOSE TAPERED FOLLOWED BY DISCONTINUATION.
  2. PREDNISONE. [Suspect]
     Active Substance: PREDNISONE
     Dosage: 5 MG, QD
     Route: 065
  3. DAPSONE. [Suspect]
     Active Substance: DAPSONE
     Indication: PEMPHIGOID
     Dosage: UNK
     Route: 065
  4. PREDNISONE. [Suspect]
     Active Substance: PREDNISONE
     Dosage: 25 MG QD
     Route: 065
  5. PREDNISONE. [Suspect]
     Active Substance: PREDNISONE
     Dosage: 0.5 MG/KG/DAY (25MG DAY)/ ADDITIONAL INFO: ACTION TAKEN: DOSE TAPERED FOLLOWED BY DISCONTINUATION. L
     Route: 065
  6. RITUXIMAB (UNKNOWN) [Suspect]
     Active Substance: RITUXIMAB
     Indication: PEMPHIGOID
     Dosage: 2 X 1000 MG DOSES (2 WEEKS); ADDITIONAL INFO: ACTION TAKEN: TREATMENT COMPLETED AS SCHEDULED/ TWO DO
     Route: 041
  7. RITUXIMAB (UNKNOWN) [Suspect]
     Active Substance: RITUXIMAB
     Dosage: 1000 MG, 2/WEEK, TWO DOSES
     Route: 065
  8. METHOTREXATE. [Suspect]
     Active Substance: METHOTREXATE
     Indication: PEMPHIGOID
     Dosage: UNK
     Route: 065
  9. CYCLOSPORINE. [Suspect]
     Active Substance: CYCLOSPORINE
     Indication: PEMPHIGOID
     Dosage: UNK
     Route: 065
  10. PREDNISONE. [Suspect]
     Active Substance: PREDNISONE
     Dosage: UNK

REACTIONS (8)
  - Pemphigoid [Recovered/Resolved]
  - Myopathy [Unknown]
  - Osteoporosis [Unknown]
  - Off label use [Unknown]
  - Condition aggravated [Recovered/Resolved]
  - Treatment failure [Unknown]
  - Hypertension [Unknown]
  - Intentional product use issue [Unknown]
